FAERS Safety Report 10471752 (Version 1)
Quarter: 2014Q3

REPORT INFORMATION
  Report Type: Spontaneous
  Country: FR (occurrence: FR)
  Receive Date: 20140923
  Receipt Date: 20140923
  Transmission Date: 20150326
  Serious: Yes (Death, Other)
  Sender: FDA-Public Use
  Company Number: PHHY2014FR122018

PATIENT
  Sex: Male

DRUGS (10)
  1. PROCARBAZINE [Suspect]
     Active Substance: PROCARBAZINE
     Indication: HODGKIN^S DISEASE STAGE IV
  2. DOXORUBICIN [Suspect]
     Active Substance: DOXORUBICIN
     Indication: HODGKIN^S DISEASE STAGE IV
  3. CYCLOPHOSPHAMIDE. [Suspect]
     Active Substance: CYCLOPHOSPHAMIDE
     Indication: HODGKIN^S DISEASE STAGE IV
  4. RIBAVARIN [Suspect]
     Active Substance: RIBAVIRIN
     Dosage: 20 MG/KG, PER DAY
     Route: 042
  5. ETOPOSIDE. [Suspect]
     Active Substance: ETOPOSIDE
     Indication: HODGKIN^S DISEASE STAGE IV
  6. PROPOFOL. [Suspect]
     Active Substance: PROPOFOL
  7. VINCRISTINE [Suspect]
     Active Substance: VINCRISTINE
     Indication: HODGKIN^S DISEASE STAGE IV
  8. PREDNISONE. [Suspect]
     Active Substance: PREDNISONE
     Indication: HODGKIN^S DISEASE STAGE IV
  9. BLEOMYCIN [Suspect]
     Active Substance: BLEOMYCIN SULFATE
     Indication: HODGKIN^S DISEASE STAGE IV
  10. IMMUNOGLOBULINS [Suspect]
     Active Substance: HUMAN IMMUNOGLOBULIN G
     Dosage: 1 G/KG, PER DAY

REACTIONS (20)
  - Propofol infusion syndrome [Fatal]
  - Renal failure [Fatal]
  - Metabolic acidosis [Fatal]
  - Febrile neutropenia [Unknown]
  - Hypotension [Fatal]
  - Acute respiratory failure [Unknown]
  - Lung infiltration [Fatal]
  - Dyspnoea [Fatal]
  - Drug ineffective [Unknown]
  - Pyrexia [Fatal]
  - Malaise [Fatal]
  - Bronchopulmonary aspergillosis [Unknown]
  - Oropharyngeal pain [Fatal]
  - Conjunctivitis [Unknown]
  - Measles [Fatal]
  - Rash erythematous [Fatal]
  - Hodgkin^s disease stage IV [Unknown]
  - Pneumonitis [Fatal]
  - Bronchitis [Fatal]
  - Pseudomonas infection [Unknown]
